FAERS Safety Report 5068297-5 (Version None)
Quarter: 2006Q3

REPORT INFORMATION
  Report Type: 
  Country: None (occurrence: None)
  Receive Date: 20060802
  Receipt Date: 20050721
  Transmission Date: 20061208
  Serious: Yes (Hospitalization)
  Sender: FDA-Public Use
  Company Number: US-BRISTOL-MYERS SQUIBB COMPANY-13045950

PATIENT
  Age: 29 Year
  Sex: Male

DRUGS (7)
  1. COUMADIN [Suspect]
     Indication: HEART VALVE REPLACEMENT
     Dosage: BEEN ON THERAPY FOR A WHILE AT DOSES UP TO 60 MG DAILY; ON 20 MG DAILY AS OF 17-JUL-2005
  2. HEPARIN [Concomitant]
     Dosage: INITIALLY ON MEDICATION; HOWEVER ^NOT ACTIVELY ON THIS MEDICATION^ AT TIME OF REPORT.
  3. TEMAZEPAM [Concomitant]
     Dosage: INITIALLY ON MEDICATION; HOWEVER ^NOT ACTIVELY ON THIS MEDICATION^ AT TIME OF REPORT.
  4. LORTAB [Concomitant]
     Dosage: INITIALLY ON MEDICATION; HOWEVER ^NOT ACTIVELY ON THIS MEDICATION^ AT TIME OF REPORT.
  5. PROTONIX [Concomitant]
     Dosage: INITIALLY ON MEDICATION; HOWEVER ^NOT ACTIVELY ON THIS MEDICATION^ AT TIME OF REPORT.
  6. NITROGLYCERIN [Concomitant]
     Dosage: INITIALLY ON MEDICATION; HOWEVER ^NOT ACTIVELY ON THIS MEDICATION^ AT TIME OF REPORT.
     Route: 061
  7. MORPHINE [Concomitant]
     Dosage: INITIALLY ON MEDICATION; HOWEVER ^NOT ACTIVELY ON THIS MEDICATION^ AT TIME OF REPORT.

REACTIONS (2)
  - INTERNATIONAL NORMALISED RATIO FLUCTUATION [None]
  - NO THERAPEUTIC RESPONSE [None]
